FAERS Safety Report 15981756 (Version 1)
Quarter: 2019Q1

REPORT INFORMATION
  Report Type: Spontaneous
  Country: US (occurrence: US)
  Receive Date: 20190219
  Receipt Date: 20190219
  Transmission Date: 20190418
  Serious: Yes (Other)
  Sender: FDA-Public Use
  Company Number: None

PATIENT
  Age: 69 Year
  Sex: Male
  Weight: 72 kg

DRUGS (1)
  1. NAROPIN [Suspect]
     Active Substance: ROPIVACAINE HYDROCHLORIDE
     Indication: EPIDURAL ANAESTHESIA
     Dosage: ?          OTHER FREQUENCY:ML/HR CONTINUOUS;?
     Route: 008

REACTIONS (2)
  - Anaesthetic complication [None]
  - Neuromuscular block prolonged [None]

NARRATIVE: CASE EVENT DATE: 20190218
